FAERS Safety Report 14735296 (Version 4)
Quarter: 2018Q3

REPORT INFORMATION
  Report Type: Spontaneous
  Country: JP (occurrence: JP)
  Receive Date: 20180409
  Receipt Date: 20180723
  Transmission Date: 20181010
  Serious: Yes (Hospitalization, Other)
  Sender: FDA-Public Use
  Company Number: JP-ABBVIE-18P-087-2314778-00

PATIENT
  Age: 70 Year
  Sex: Male
  Weight: 55 kg

DRUGS (10)
  1. DARBEPOETIN ALFA RECOMBINANT [Concomitant]
     Indication: DIALYSIS
     Dosage: ON FRIDAY
     Dates: start: 20171229
  2. MAVIRET [Suspect]
     Active Substance: GLECAPREVIR\PIBRENTASVIR
     Indication: HEPATIC CIRRHOSIS
     Route: 048
     Dates: start: 20180111, end: 20180318
  3. LEVOTHYROXINE SODIUM HYDRATE [Concomitant]
     Active Substance: LEVOTHYROXINE SODIUM
     Indication: HYPOTHYROIDISM
     Route: 048
     Dates: start: 20170621
  4. AMEZINIUM METILSULFATE [Concomitant]
     Active Substance: AMEZINIUM METILSULFATE
     Indication: BLOOD PRESSURE MANAGEMENT
     Route: 048
     Dates: start: 20180223
  5. BROTIZOLAM [Concomitant]
     Active Substance: BROTIZOLAM
     Indication: INSOMNIA
     Route: 048
     Dates: start: 20110211
  6. CLOSTRIDIUM BUTYRICUM [Concomitant]
     Active Substance: CLOSTRIDIUM BUTYRICUM SPORES STRAIN M-55
     Indication: PROBIOTIC THERAPY
     Route: 048
     Dates: start: 20131023
  7. MECOBALAMIN [Concomitant]
     Active Substance: METHYLCOBALAMIN
     Indication: NEUROPATHY PERIPHERAL
     Route: 048
     Dates: start: 20160528
  8. DIGOXIN. [Concomitant]
     Active Substance: DIGOXIN
     Indication: PRODUCT USED FOR UNKNOWN INDICATION
  9. URSODEOXYCHOLIC ACID [Concomitant]
     Active Substance: URSODIOL
     Indication: PROPHYLAXIS
     Route: 048
     Dates: start: 20080829
  10. MONOAMMONIUM GLYCYRRHIZINATE ? GLYCINE ? L?CYSTEINE HYDROCHLORIDE MIXT [Concomitant]
     Indication: DIALYSIS
     Dosage: ON MONDAY, WEDNESDAY AND FRIDAY
     Route: 042
     Dates: start: 20161109

REACTIONS (8)
  - Melaena [Unknown]
  - Diarrhoea haemorrhagic [Unknown]
  - Large intestinal ulcer haemorrhage [Recovered/Resolved]
  - Blood pressure decreased [Unknown]
  - Gastrointestinal angiodysplasia [Unknown]
  - Melaena [Recovered/Resolved]
  - Anaemia [Unknown]
  - Malaise [Unknown]

NARRATIVE: CASE EVENT DATE: 20180318
